FAERS Safety Report 15256114 (Version 2)
Quarter: 2018Q3

REPORT INFORMATION
  Report Type: Report from Study
  Country: BR (occurrence: BR)
  Receive Date: 20180808
  Receipt Date: 20180816
  Transmission Date: 20181010
  Serious: Yes (Other)
  Sender: FDA-Public Use
  Company Number: PHHY2018BR066253

PATIENT
  Age: 68 Year
  Sex: Female
  Weight: 72 kg

DRUGS (11)
  1. DIOVAN AMLO FIX [Suspect]
     Active Substance: AMLODIPINE\VALSARTAN
     Indication: HYPERTENSION
     Dosage: 1 DF (AMLODIPINE 5 MG, VALSARTAN 320 MG), QD
     Route: 048
  2. DIOVAN [Suspect]
     Active Substance: VALSARTAN
     Indication: HYPERTENSION
     Dosage: 1 DF (320MG), QD IN THE MORNING (STARTED ONE MONTH AGO)
     Route: 048
  3. NPH INSULIN [Concomitant]
     Active Substance: INSULIN BEEF
     Indication: DIABETES MELLITUS
     Dosage: (40 UN TO AFTERNOON AND 10 UN TO DAY), QD (STARTED 10 YEARS AGO)
     Route: 058
  4. ABAC [Concomitant]
     Indication: INADEQUATE LUBRICATION
     Dosage: 1 DRP ((1 DROP IN EACH EYE), Q2H (STRTED 17 YEARS AGO)
     Route: 047
  5. INSULIN RAPID [Concomitant]
     Active Substance: INSULIN NOS
     Indication: DIABETES MELLITUS
     Dosage: 5 U, PRN (STARTED 10 YEARS AGO)
     Route: 058
  6. LUMIGAN [Concomitant]
     Active Substance: BIMATOPROST
     Indication: RETINAL DETACHMENT
     Dosage: 1 DRP (1 DROP IN EACH EYE), TID (STARTED 17 YEARS AGO)
     Route: 047
  7. AMLODIPINE [Suspect]
     Active Substance: AMLODIPINE BESYLATE
     Indication: HYPERTENSION
     Dosage: 1 DF (5 UNITS NOT REPORTED), UNK
     Route: 048
  8. AMLODIPINE [Suspect]
     Active Substance: AMLODIPINE BESYLATE
     Dosage: 2 DF, QD (STARTED 1 YEAR AGO)
     Route: 048
  9. VALSARTAN. [Suspect]
     Active Substance: VALSARTAN
     Indication: HYPERTENSION
     Dosage: 1 DF, QD (FROM MEDLEY)
     Route: 048
     Dates: start: 201701
  10. METHYLDOPA. [Concomitant]
     Active Substance: METHYLDOPA
     Indication: HYPERTENSION
     Dosage: 2 DF, QD (STARTED ONE AND HALF YEARS AGO)
     Route: 048
  11. GLIFAGE [Concomitant]
     Active Substance: METFORMIN HYDROCHLORIDE
     Indication: DIABETES MELLITUS
     Dosage: 2 DF, QD (STARTED 2 YEARS AGO)
     Route: 048

REACTIONS (21)
  - Weight decreased [Recovering/Resolving]
  - Blood pressure increased [Recovering/Resolving]
  - Dysstasia [Unknown]
  - Pain [Recovering/Resolving]
  - Chikungunya virus infection [Recovering/Resolving]
  - Eye pain [Recovering/Resolving]
  - Pain in extremity [Recovering/Resolving]
  - Arthralgia [Recovering/Resolving]
  - Depression [Recovering/Resolving]
  - Anxiety [Recovering/Resolving]
  - Sensitivity to weather change [Recovering/Resolving]
  - Nausea [Recovering/Resolving]
  - Nasopharyngitis [Recovering/Resolving]
  - Decreased appetite [Recovering/Resolving]
  - Head discomfort [Not Recovered/Not Resolved]
  - Blindness unilateral [Not Recovered/Not Resolved]
  - Blood pressure fluctuation [Unknown]
  - Feeling cold [Recovering/Resolving]
  - Spinal disorder [Unknown]
  - Asthenia [Recovering/Resolving]
  - Neck pain [Recovering/Resolving]

NARRATIVE: CASE EVENT DATE: 201708
